FAERS Safety Report 19471133 (Version 1)
Quarter: 2021Q2

REPORT INFORMATION
  Report Type: Spontaneous
  Country: US (occurrence: US)
  Receive Date: 20210628
  Receipt Date: 20210628
  Transmission Date: 20210717
  Serious: No
  Sender: FDA-Public Use
  Company Number: None

PATIENT
  Age: 65 Year
  Sex: Male

DRUGS (1)
  1. CAPECITABINE TAB 500MG [Suspect]
     Active Substance: CAPECITABINE
     Route: 048
     Dates: start: 202106

REACTIONS (5)
  - Neoplasm malignant [None]
  - Fatigue [None]
  - Feeding disorder [None]
  - Gastric ulcer [None]
  - Therapy interrupted [None]

NARRATIVE: CASE EVENT DATE: 20210607
